FAERS Safety Report 5742310-1 (Version None)
Quarter: 2008Q2

REPORT INFORMATION
  Report Type: 
  Country: None (occurrence: None)
  Receive Date: 20080515
  Receipt Date: 20080506
  Transmission Date: 20081010
  Serious: Yes (Other)
  Sender: FDA-Public Use
  Company Number: 056-20785-08050517

PATIENT
  Age: 58 Year
  Sex: Male

DRUGS (1)
  1. THALOMID [Suspect]
     Indication: MULTIPLE MYELOMA
     Dosage: 200 MG, PER DAY, ORAL
     Route: 048
     Dates: start: 20040101

REACTIONS (6)
  - DISEASE RECURRENCE [None]
  - GASTROINTESTINAL TOXICITY [None]
  - MULTIPLE MYELOMA [None]
  - NEUROTOXICITY [None]
  - PARAPLEGIA [None]
  - SPINAL DISORDER [None]
